FAERS Safety Report 8007555-9 (Version None)
Quarter: 2011Q4

REPORT INFORMATION
  Report Type: 
  Country: None (occurrence: None)
  Receive Date: 20111227
  Receipt Date: 20111219
  Transmission Date: 20120403
  Serious: Yes (Hospitalization)
  Sender: FDA-Public Use
  Company Number: AR-NOVOPROD-339744

PATIENT

DRUGS (8)
  1. METFORMIN HCL [Concomitant]
     Dosage: 1000 MG, QD
     Route: 048
  2. ZOLPIDEM [Concomitant]
     Dosage: 10 MG, QD
     Route: 048
  3. MODURETIC 5-50 [Concomitant]
     Route: 048
  4. GLIMEPIRIDE [Concomitant]
     Dosage: 2 MG, QD
     Route: 048
  5. VICTOZA [Suspect]
     Dosage: 1.8 MG, QD
     Route: 065
     Dates: start: 20111020, end: 20111114
  6. ENALAPRIL MALEATE [Concomitant]
     Dosage: 20 MG, QD
     Route: 048
  7. VICTOZA [Suspect]
     Indication: TYPE 2 DIABETES MELLITUS
     Dosage: 1.8 MG, QD
     Route: 065
     Dates: start: 20111013, end: 20111014
  8. ROSUVASTATINE [Concomitant]
     Dosage: 10 MG, QD
     Route: 048

REACTIONS (1)
  - PANCREATITIS ACUTE [None]
